FAERS Safety Report 6432348-3 (Version None)
Quarter: 2009Q4

REPORT INFORMATION
  Report Type: 
  Country: None (occurrence: None)
  Receive Date: 20091109
  Receipt Date: 20091008
  Transmission Date: 20100525
  Serious: No
  Sender: FDA-Public Use
  Company Number: US-BAYER-200928636NA

PATIENT
  Age: 53 Year
  Sex: Female

DRUGS (1)
  1. CLIMARA PRO [Suspect]
     Indication: MENOPAUSAL SYMPTOMS
     Dosage: (0.045 MG OF ESTRADIOL AND 0.015MG OF LEVONORGESTREL), VIA TRANSDERMAL PATCHES APPLIED WEEKLY
     Route: 062

REACTIONS (1)
  - MENOPAUSAL SYMPTOMS [None]
